FAERS Safety Report 9966347 (Version 1)
Quarter: 2014Q1

REPORT INFORMATION
  Report Type: Report from Study
  Country: US (occurrence: US)
  Receive Date: 20140305
  Receipt Date: 20140305
  Transmission Date: 20141002
  Serious: No
  Sender: FDA-Public Use
  Company Number: US-ABBVIE-13P-163-1122578-00

PATIENT
  Sex: Male

DRUGS (4)
  1. HUMIRA [Suspect]
     Indication: PSORIASIS
  2. MULTIVITAMINS [Concomitant]
     Indication: PRODUCT USED FOR UNKNOWN INDICATION
  3. CORTISONE [Concomitant]
     Indication: BACK DISORDER
     Route: 050
  4. PAIN KILLERS UNKNOWN MEDICATION [Concomitant]
     Indication: BACK DISORDER

REACTIONS (1)
  - Muscle spasms [Not Recovered/Not Resolved]
